FAERS Safety Report 19491313 (Version 2)
Quarter: 2021Q3

REPORT INFORMATION
  Report Type: Spontaneous
  Country: US (occurrence: US)
  Receive Date: 20210705
  Receipt Date: 20210708
  Transmission Date: 20211014
  Serious: Yes (Other)
  Sender: FDA-Public Use
  Company Number: US-SA-2021SA211597

PATIENT
  Sex: Female

DRUGS (1)
  1. ELOXATIN [Suspect]
     Active Substance: OXALIPLATIN

REACTIONS (4)
  - Fine motor skill dysfunction [Recovered/Resolved]
  - Gait inability [Recovered/Resolved]
  - Grip strength [Recovered/Resolved]
  - Tremor [Unknown]
